FAERS Safety Report 8077863-4 (Version None)
Quarter: 2012Q1

REPORT INFORMATION
  Report Type: 
  Country: None (occurrence: None)
  Receive Date: 20120127
  Receipt Date: 20120116
  Transmission Date: 20120608
  Serious: Yes (Other)
  Sender: FDA-Public Use
  Company Number: FR-ALLERGAN-1200675US

PATIENT
  Age: 72 Year
  Sex: Male

DRUGS (5)
  1. TARKA [Concomitant]
     Indication: HYPERTENSION
  2. BECLOMETHASONE DIPROPIONATE [Concomitant]
     Indication: ASTHMA
     Dosage: UNK
  3. AIROMIR [Concomitant]
     Indication: ASTHMA
  4. BIMATOPROST AND TIMOLOL MALEATE [Suspect]
     Indication: GLAUCOMA
     Dosage: UNK
     Route: 047
     Dates: start: 20110520, end: 20110524
  5. HYPERIUM [Concomitant]
     Indication: HYPERTENSION

REACTIONS (5)
  - HYPERTENSION [None]
  - LOSS OF CONSCIOUSNESS [None]
  - RESPIRATORY ARREST [None]
  - ASTHMA [None]
  - BRONCHITIS [None]
